FAERS Safety Report 7949301-0 (Version None)
Quarter: 2011Q4

REPORT INFORMATION
  Report Type: 
  Country: None (occurrence: None)
  Receive Date: 20111130
  Receipt Date: 20111125
  Transmission Date: 20120403
  Serious: Yes (Hospitalization)
  Sender: FDA-Public Use
  Company Number: AU-B.I. PHARMACEUTICALS,INC./RIDGEFIELD-2011-AU-02167AU

PATIENT
  Sex: Female
  Weight: 70 kg

DRUGS (3)
  1. PRADAXA [Suspect]
     Indication: HEART VALVE REPLACEMENT
     Dosage: 220 MG
     Dates: end: 20111001
  2. PRILOSEC [Concomitant]
  3. AVAPRO [Concomitant]

REACTIONS (1)
  - CARDIAC VALVE REPLACEMENT COMPLICATION [None]
